FAERS Safety Report 8608359 (Version 3)
Quarter: 2013Q1

REPORT INFORMATION
  Report Type: Report from Study
  Country: DE (occurrence: DE)
  Receive Date: 20120611
  Receipt Date: 20130312
  Transmission Date: 20140127
  Serious: Yes (Hospitalization)
  Sender: FDA-Public Use
  Company Number: DE-ROCHE-1074250

PATIENT
  Sex: Male
  Weight: 64 kg

DRUGS (6)
  1. BEVACIZUMAB [Suspect]
     Indication: COLON CANCER METASTATIC
     Route: 042
     Dates: start: 20120328, end: 20120411
  2. GRANISETRON [Concomitant]
     Route: 042
  3. DEXAMETHASON [Concomitant]
     Route: 065
  4. OXALIPLATIN [Concomitant]
     Indication: COLON CANCER METASTATIC
     Route: 065
     Dates: start: 20120229
  5. FOLINIC ACID [Concomitant]
     Indication: COLON CANCER METASTATIC
     Route: 065
     Dates: start: 20120229
  6. 5-FU [Concomitant]
     Indication: COLON CANCER METASTATIC
     Route: 065
     Dates: start: 20120229

REACTIONS (3)
  - Cerebral infarction [Recovered/Resolved]
  - Hemiparesis [Recovered/Resolved]
  - Confusional state [Recovered/Resolved]
